FAERS Safety Report 8006870-2 (Version None)
Quarter: 2011Q4

REPORT INFORMATION
  Report Type: 
  Country: None (occurrence: None)
  Receive Date: 20111227
  Receipt Date: 20111215
  Transmission Date: 20120403
  Serious: Yes (Hospitalization)
  Sender: FDA-Public Use
  Company Number: US-BAYER-2011-029133

PATIENT
  Age: 33 Year
  Sex: Female
  Weight: 54.875 kg

DRUGS (3)
  1. MULTI-VITAMINS [Concomitant]
     Dosage: UNK
     Dates: start: 20080601, end: 20080701
  2. MOTRIN [Concomitant]
     Dosage: UNK UNK, PRN
  3. YASMIN [Suspect]
     Indication: PREMENSTRUAL SYNDROME
     Dosage: UNK
     Dates: start: 20050701, end: 20080701

REACTIONS (3)
  - PAIN [None]
  - DEEP VEIN THROMBOSIS [None]
  - INJURY [None]
